FAERS Safety Report 5879643-4 (Version None)
Quarter: 2008Q3

REPORT INFORMATION
  Report Type: 
  Country: None (occurrence: None)
  Receive Date: 20080912
  Receipt Date: 20080904
  Transmission Date: 20090109
  Serious: Yes (Hospitalization)
  Sender: FDA-Public Use
  Company Number: US-ABBOTT-08P-163-0474451-00

PATIENT
  Sex: Female
  Weight: 45.4 kg

DRUGS (8)
  1. HUMIRA [Suspect]
     Indication: RHEUMATOID ARTHRITIS
     Route: 058
  2. OMEPRAZOLE [Concomitant]
     Indication: DYSPEPSIA
     Route: 048
  3. PREDNISONE [Concomitant]
     Indication: RHEUMATOID ARTHRITIS
     Route: 048
  4. GABAPENTIN [Concomitant]
     Indication: RHEUMATOID ARTHRITIS
     Route: 048
  5. GABAPENTIN [Concomitant]
     Indication: PAIN
  6. KADAIN [Concomitant]
     Indication: PAIN
     Route: 048
  7. HYDROCODONE BITARTRATE [Concomitant]
     Indication: PAIN
     Dosage: 5/500MG
     Route: 048
  8. ONDANSTERN/HCL [Concomitant]
     Indication: PAIN
     Route: 048

REACTIONS (6)
  - ABDOMINAL PAIN [None]
  - ARTHRALGIA [None]
  - DIVERTICULITIS [None]
  - FAECAL INCONTINENCE [None]
  - HALLUCINATION [None]
  - MUSCULAR WEAKNESS [None]
